FAERS Safety Report 20316708 (Version 3)
Quarter: 2022Q1

REPORT INFORMATION
  Report Type: Spontaneous
  Country: US (occurrence: US)
  Receive Date: 20220110
  Receipt Date: 20220207
  Transmission Date: 20220424
  Serious: Yes (Other)
  Sender: FDA-Public Use
  Company Number: US-PFIZER INC-202200005187

PATIENT
  Age: 17 Year
  Sex: Male
  Weight: 63.5 kg

DRUGS (1)
  1. GENOTROPIN [Suspect]
     Active Substance: SOMATROPIN
     Indication: Growth hormone deficiency
     Dosage: 3 MG, DAILY

REACTIONS (4)
  - Device information output issue [Unknown]
  - Device mechanical issue [Unknown]
  - Incorrect dose administered by device [Unknown]
  - Device use issue [Unknown]

NARRATIVE: CASE EVENT DATE: 20211230
